FAERS Safety Report 21996015 (Version 1)
Quarter: 2023Q1

REPORT INFORMATION
  Report Type: Spontaneous
  Country: US (occurrence: US)
  Receive Date: 20230215
  Receipt Date: 20230215
  Transmission Date: 20230417
  Serious: No
  Sender: FDA-Public Use
  Company Number: US-ALLERGAN-2211312US

PATIENT
  Age: 18 Year
  Sex: Male

DRUGS (2)
  1. TAZAROTENE [Suspect]
     Active Substance: TAZAROTENE
     Indication: Acne
  2. WINLEVI [Concomitant]
     Active Substance: CLASCOTERONE
     Dates: start: 20211124, end: 20220318

REACTIONS (1)
  - Gynaecomastia [Unknown]

NARRATIVE: CASE EVENT DATE: 20220218
